FAERS Safety Report 25620014 (Version 1)
Quarter: 2025Q3

REPORT INFORMATION
  Report Type: Spontaneous
  Country: CA (occurrence: CA)
  Receive Date: 20250730
  Receipt Date: 20250730
  Transmission Date: 20251020
  Serious: Yes (Other)
  Sender: JOHNSON AND JOHNSON
  Company Number: CA-JNJFOC-20250732095

PATIENT
  Age: 82 Year
  Sex: Female

DRUGS (1)
  1. USTEKINUMAB [Suspect]
     Active Substance: USTEKINUMAB
     Indication: Annular elastolytic giant cell granuloma
     Route: 058

REACTIONS (3)
  - Intentional product use issue [Unknown]
  - Loss of therapeutic response [Unknown]
  - Off label use [Unknown]
